FAERS Safety Report 7121913-6 (Version None)
Quarter: 2010Q4

REPORT INFORMATION
  Report Type: 
  Country: None (occurrence: None)
  Receive Date: 20101124
  Receipt Date: 20101115
  Transmission Date: 20110411
  Serious: Yes (Other)
  Sender: FDA-Public Use
  Company Number: JP-PFIZER INC-2010146184

PATIENT
  Age: 79 Year
  Sex: Male

DRUGS (3)
  1. ZITHROMAX [Suspect]
     Dosage: 500 MG, UNK
     Route: 048
  2. UNASYN [Suspect]
     Dosage: 6 G, UNK
     Route: 041
  3. NORVASC [Suspect]
     Dosage: 5 MG, UNK
     Route: 048

REACTIONS (1)
  - INTERSTITIAL LUNG DISEASE [None]
